FAERS Safety Report 8010560-X (Version None)
Quarter: 2011Q4

REPORT INFORMATION
  Report Type: 
  Country: None (occurrence: None)
  Receive Date: 20111228
  Receipt Date: 20111213
  Transmission Date: 20120403
  Serious: Yes (Hospitalization, Disabling)
  Sender: FDA-Public Use
  Company Number: PHHY2011AU96039

PATIENT
  Sex: Male

DRUGS (1)
  1. CLOZARIL [Suspect]
     Dosage: 725 MG
     Route: 048
     Dates: start: 20031215

REACTIONS (3)
  - ACUTE CORONARY SYNDROME [None]
  - MYOCARDIAL ISCHAEMIA [None]
  - MYOCARDIAL INFARCTION [None]
